FAERS Safety Report 15720424 (Version 1)
Quarter: 2018Q4

REPORT INFORMATION
  Report Type: Spontaneous
  Country: JP (occurrence: JP)
  Receive Date: 20181213
  Receipt Date: 20181213
  Transmission Date: 20190205
  Serious: Yes (Other)
  Sender: FDA-Public Use
  Company Number: JP-GILEAD-2018-0366018

PATIENT
  Age: 50 Year
  Sex: Male

DRUGS (1)
  1. VEMLIDY [Suspect]
     Active Substance: TENOFOVIR ALAFENAMIDE FUMARATE
     Indication: HEPATITIS B
     Dosage: 25 MG, 1DF
     Route: 048
     Dates: start: 201805

REACTIONS (3)
  - Transaminases increased [Recovered/Resolved]
  - Hepatitis B DNA increased [Recovered/Resolved]
  - Drug ineffective [Not Recovered/Not Resolved]

NARRATIVE: CASE EVENT DATE: 20181001
